FAERS Safety Report 8474604-3 (Version None)
Quarter: 2012Q2

REPORT INFORMATION
  Report Type: 
  Country: None (occurrence: None)
  Receive Date: 20120622
  Receipt Date: 20120615
  Transmission Date: 20120825
  Serious: Yes (Other)
  Sender: FDA-Public Use
  Company Number: AUR-APL-2011-01123

PATIENT
  Age: 95 Year
  Sex: Male

DRUGS (6)
  1. ACETAMINOPHEN [Concomitant]
  2. FENTANYL [Concomitant]
  3. OMEPRAZOLE [Concomitant]
  4. LISINOPRIL [Suspect]
     Indication: HYPERTENSION
     Dosage: 5 MG (5 MG, 1 IN 1 D),ORAL, 2.5 MG (2.5 MG,1 IN 1 D),ORAL
     Route: 048
     Dates: start: 20060619
  5. LYRICA [Suspect]
     Indication: PRODUCT USED FOR UNKNOWN INDICATION
     Dosage: (25 MG, 1 IN 1 D),
  6. AMITRIPTYLINE HYDROCHLORIDE [Concomitant]

REACTIONS (4)
  - HALLUCINATION [None]
  - DEPRESSION [None]
  - FALL [None]
  - SYNCOPE [None]
